FAERS Safety Report 5167238-X (Version None)
Quarter: 2006Q4

REPORT INFORMATION
  Report Type: 
  Country: None (occurrence: None)
  Receive Date: 20061129
  Receipt Date: 20061122
  Transmission Date: 20070319
  Serious: Yes (Life-Threatening)
  Sender: FDA-Public Use
  Company Number: A20061131

PATIENT
  Age: 36 Year
  Sex: Female

DRUGS (2)
  1. CRAVIT OPHTHALMIC SOLUTION (0.5% LEVOFLOXACIN OPHTHALMIC SOLUTION) [Suspect]
     Indication: PINGUECULITIS
     Dosage: 4 TIMES, INTRAOCULAR INSTILLATION
     Route: 031
     Dates: start: 20060927
  2. FLUOROMETHOLONE [Concomitant]

REACTIONS (1)
  - ANAPHYLACTIC SHOCK [None]
